FAERS Safety Report 9753862 (Version 2)
Quarter: 2013Q4

REPORT INFORMATION
  Report Type: Spontaneous
  Country: US (occurrence: US)
  Receive Date: 20131213
  Receipt Date: 20131213
  Transmission Date: 20140711
  Serious: No
  Sender: FDA-Public Use
  Company Number: US-GILEAD-2010-0027081

PATIENT
  Sex: Female
  Weight: 90.72 kg

DRUGS (20)
  1. LETAIRIS [Suspect]
     Indication: PULMONARY ARTERIAL HYPERTENSION
     Route: 048
     Dates: start: 20091030
  2. TORSEMIDE [Concomitant]
  3. AMLODIPINE [Concomitant]
  4. BENAZEPRIL [Concomitant]
  5. SIMVASTATIN [Concomitant]
  6. NITROGLYCERIN [Concomitant]
  7. PLAVIX [Concomitant]
  8. ASPIRIN [Concomitant]
  9. HYDRALAZINE [Concomitant]
  10. ISOSORBIDE [Concomitant]
  11. GABAPENTIN [Concomitant]
  12. DARVOCET [Concomitant]
  13. COLCHICINE [Concomitant]
  14. TEMAZEPAM [Concomitant]
  15. METHOCARBAMOL [Concomitant]
  16. GLIPIZIDE [Concomitant]
  17. GAS X [Concomitant]
  18. VITAMIN D [Concomitant]
  19. MULTIVITAMIN [Concomitant]
  20. FISH OIL [Concomitant]

REACTIONS (4)
  - Increased tendency to bruise [Unknown]
  - Cold sweat [Unknown]
  - Dyspnoea [Unknown]
  - Palpitations [Unknown]
